FAERS Safety Report 11550784 (Version 1)
Quarter: 2015Q3

REPORT INFORMATION
  Report Type: Spontaneous
  Country: US (occurrence: US)
  Receive Date: 20150903
  Receipt Date: 20150903
  Transmission Date: 20151125
  Serious: No
  Sender: FDA-Public Use
  Company Number: US-ELI_LILLY_AND_COMPANY-US201209008367

PATIENT
  Sex: Male

DRUGS (5)
  1. PRANDIN [Concomitant]
     Active Substance: REPAGLINIDE
  2. VICTOZA [Concomitant]
     Active Substance: LIRAGLUTIDE
  3. GEMFIBROZIL. [Concomitant]
     Active Substance: GEMFIBROZIL
  4. HUMALOG [Suspect]
     Active Substance: INSULIN LISPRO
     Indication: TYPE 2 DIABETES MELLITUS
     Dosage: UNK, PRN
     Route: 065
  5. HUMALOG [Suspect]
     Active Substance: INSULIN LISPRO
     Dosage: UNK, PRN
     Route: 065

REACTIONS (2)
  - Blood glucose increased [Recovering/Resolving]
  - Medication error [Unknown]
